FAERS Safety Report 6116229-0 (Version None)
Quarter: 2009Q1

REPORT INFORMATION
  Report Type: 
  Country: None (occurrence: None)
  Receive Date: 20090314
  Receipt Date: 20081203
  Transmission Date: 20090719
  Serious: No
  Sender: FDA-Public Use
  Company Number: US-ABBOTT-08P-163-0490934-00

PATIENT
  Sex: Female
  Weight: 100.79 kg

DRUGS (7)
  1. HUMIRA [Suspect]
     Indication: RHEUMATOID ARTHRITIS
     Dates: start: 20080714, end: 20081101
  2. HYDROXYCHLOROQUINE [Concomitant]
     Indication: DRUG USE FOR UNKNOWN INDICATION
     Dosage: NOT REPORTED
  3. METHOTREXATE [Concomitant]
     Indication: RHEUMATOID ARTHRITIS
  4. METFORMIN HCL [Concomitant]
     Indication: DIABETES MELLITUS
     Dosage: NOT REPORTED
  5. OMEPRAZOLE MAGNESIUM [Concomitant]
     Indication: GASTROOESOPHAGEAL REFLUX DISEASE
     Dosage: NOT REPORTED
  6. MEGESTROL ACETATE [Concomitant]
     Indication: UTERINE CANCER
     Dosage: NOT REPORTED
  7. LEVOTHYROXINE SODIUM [Concomitant]
     Indication: THYROID DISORDER
     Dosage: NOT REPORTED

REACTIONS (5)
  - ASTHENIA [None]
  - DENTAL CARIES [None]
  - JOINT SWELLING [None]
  - TOOTH EXTRACTION [None]
  - TOOTHACHE [None]
